FAERS Safety Report 8280294 (Version 3)
Quarter: 2013Q1

REPORT INFORMATION
  Report Type: Spontaneous
  Country: US (occurrence: US)
  Receive Date: 20111208
  Receipt Date: 20130111
  Transmission Date: 20140127
  Serious: Yes (Other)
  Sender: FDA-Public Use
  Company Number: US-BAYER-2011-115036

PATIENT
  Age: 32 Year
  Sex: Female
  Weight: 73.47 kg

DRUGS (5)
  1. MIRENA [Suspect]
     Indication: CONTRACEPTION
     Dosage: 20 MCG/24HR, CONT
     Route: 015
     Dates: start: 20100830, end: 20120105
  2. LOVENOX [ENOXAPARIN SODIUM] [Concomitant]
     Indication: HYPERCOAGULATION
  3. PREDNISONE [Concomitant]
     Dosage: 5 MG, QD
  4. LEVOTHYROXINE [Concomitant]
     Dosage: 175 ?G, UNK
  5. LIOTHYRONINE [Concomitant]
     Dosage: 25 ?G, UNK

REACTIONS (6)
  - Post procedural haemorrhage [None]
  - Pregnancy with contraceptive device [Not Recovered/Not Resolved]
  - Device dislocation [Not Recovered/Not Resolved]
  - Abortion spontaneous [None]
  - Drug ineffective [None]
  - Procedural haemorrhage [None]
